FAERS Safety Report 5632225-1 (Version None)
Quarter: 2008Q1

REPORT INFORMATION
  Report Type: 
  Country: None (occurrence: None)
  Receive Date: 20080220
  Receipt Date: 20080211
  Transmission Date: 20080703
  Serious: Yes (Hospitalization)
  Sender: FDA-Public Use
  Company Number: GB-ABBOTT-07P-167-0431163-00

PATIENT

DRUGS (7)
  1. HUMIRA [Suspect]
     Indication: CROHN'S DISEASE
     Route: 058
     Dates: start: 20050701
  2. HUMIRA [Suspect]
  3. HUMIRA [Suspect]
     Dates: start: 20070901
  4. EUGYNON [Concomitant]
     Indication: DRUG USE FOR UNKNOWN INDICATION
     Route: 048
  5. FENTANYL LOLLIPOPS [Concomitant]
     Indication: ANALGESIA
     Dosage: 10-12 DAILY
     Route: 048
     Dates: start: 20040101
  6. ESOMEPRAZOLE MAGNESIUM [Concomitant]
     Indication: GASTROOESOPHAGEAL REFLUX DISEASE
     Route: 048
     Dates: start: 20071224
  7. ONDANSETRON [Concomitant]
     Indication: NAUSEA
     Route: 048

REACTIONS (3)
  - BLINDNESS [None]
  - HEMICEPHALALGIA [None]
  - VISUAL DISTURBANCE [None]
